FAERS Safety Report 11994118 (Version 2)
Quarter: 2016Q2

REPORT INFORMATION
  Report Type: Spontaneous
  Country: US (occurrence: US)
  Receive Date: 20160203
  Receipt Date: 20160527
  Transmission Date: 20160815
  Serious: Yes (Death, Hospitalization, Disabling, Other)
  Sender: FDA-Public Use
  Company Number: US-009507513-1602USA001368

PATIENT
  Sex: Male
  Weight: 104.31 kg

DRUGS (1)
  1. JANUVIA [Suspect]
     Active Substance: SITAGLIPTIN PHOSPHATE
     Indication: TYPE 2 DIABETES MELLITUS
     Dosage: 100 MG, QD
     Route: 048
     Dates: start: 20100423, end: 20111115

REACTIONS (48)
  - Pancreatic carcinoma metastatic [Fatal]
  - Cholecystitis [Unknown]
  - Bile duct stone [Unknown]
  - Urinary tract infection [Unknown]
  - Diarrhoea [Unknown]
  - Pleural effusion [Unknown]
  - Colon cancer stage II [Unknown]
  - Alcoholic pancreatitis [Recovering/Resolving]
  - Haemorrhoids [Unknown]
  - Hepatic calcification [Unknown]
  - Hypertension [Unknown]
  - Drug ineffective [Unknown]
  - Radiotherapy [Unknown]
  - Pneumonia [Unknown]
  - Psoriasis [Unknown]
  - Nephrolithiasis [Unknown]
  - Pancreatic pseudocyst [Unknown]
  - Anaemia [Unknown]
  - Abdominal hernia [Recovered/Resolved]
  - Aortic dilatation [Unknown]
  - Granuloma [Unknown]
  - Pneumonia [Unknown]
  - Pancreatitis [Unknown]
  - Orthostatic hypotension [Unknown]
  - Atelectasis [Unknown]
  - Pleural effusion [Unknown]
  - Alcohol abuse [Unknown]
  - Cholelithiasis [Unknown]
  - Appendicectomy [Unknown]
  - Anaemia [Unknown]
  - Splenic infarction [Unknown]
  - Diverticulum [Unknown]
  - Splenic calcification [Unknown]
  - Jaundice cholestatic [Unknown]
  - Pancreatitis chronic [Not Recovered/Not Resolved]
  - Pancreatitis [Unknown]
  - Pancreatitis acute [Recovering/Resolving]
  - Arteriosclerosis coronary artery [Unknown]
  - Pulmonary calcification [Unknown]
  - Gastritis [Unknown]
  - Large intestine polyp [Unknown]
  - Basosquamous carcinoma [Unknown]
  - Diverticulitis intestinal haemorrhagic [Unknown]
  - Lower gastrointestinal haemorrhage [Unknown]
  - Prostatomegaly [Unknown]
  - Insomnia [Unknown]
  - Spinal osteoarthritis [Not Recovered/Not Resolved]
  - Flatulence [Unknown]

NARRATIVE: CASE EVENT DATE: 201010
